FAERS Safety Report 19276139 (Version 6)
Quarter: 2021Q3

REPORT INFORMATION
  Report Type: Spontaneous
  Country: PL (occurrence: PL)
  Receive Date: 20210520
  Receipt Date: 20210806
  Transmission Date: 20211014
  Serious: Yes (Life-Threatening, Hospitalization)
  Sender: FDA-Public Use
  Company Number: PL-ASTRAZENECA-2021A434454

PATIENT
  Sex: Male
  Weight: 78 kg

DRUGS (52)
  1. CLEXANE [Suspect]
     Active Substance: ENOXAPARIN SODIUM
     Indication: COVID-19
     Dosage: UNKNOWN0.4MG UNKNOWN
     Route: 058
     Dates: start: 20210501, end: 20210506
  2. DEXAVEN [Suspect]
     Active Substance: DEXAMETHASONE
     Indication: COVID-19
     Dosage: UNKNOWN
     Route: 065
  3. DEXAVEN [Suspect]
     Active Substance: DEXAMETHASONE
     Indication: CHRONIC RESPIRATORY FAILURE
     Dosage: UNKNOWN
     Route: 065
  4. BIOTRAKSON [Suspect]
     Active Substance: CEFTRIAXONE SODIUM
     Indication: PRODUCT USED FOR UNKNOWN INDICATION
     Dosage: UNKNOWN
     Route: 065
     Dates: start: 20210421, end: 20210514
  5. FLEGAMINA [Suspect]
     Active Substance: BROMHEXINE HYDROCHLORIDE
     Indication: COVID-19
     Dosage: UNKNOWN
     Route: 065
  6. OXYGEN. [Suspect]
     Active Substance: OXYGEN
     Indication: PRODUCT USED FOR UNKNOWN INDICATION
     Dosage: UNKNOWN
     Route: 065
  7. OXYGEN. [Suspect]
     Active Substance: OXYGEN
     Indication: COVID-19
     Dosage: UNKNOWN
     Route: 055
     Dates: start: 20210421, end: 20210514
  8. VITAMINUM C [Concomitant]
     Route: 065
     Dates: start: 2005
  9. CO BESPRES [Concomitant]
     Route: 065
     Dates: start: 20170628
  10. ELECTROLYTE SOLUTIONS [Concomitant]
     Active Substance: UNSPECIFIED INGREDIENT
     Route: 065
     Dates: start: 20210421, end: 20210514
  11. INNO.N SODIUM CHLORIDE [Concomitant]
     Route: 065
     Dates: start: 20210421, end: 20210514
  12. XARELTO [Concomitant]
     Active Substance: RIVAROXABAN
     Dates: start: 20210506
  13. VITAMIN K2 [Concomitant]
     Active Substance: MENAQUINONE 6
     Route: 065
     Dates: start: 201703
  14. BIOTRAKSON [Suspect]
     Active Substance: CEFTRIAXONE SODIUM
     Indication: PRODUCT USED FOR UNKNOWN INDICATION
     Dosage: UNKNOWN
     Route: 065
  15. FLEGAMINA [Suspect]
     Active Substance: BROMHEXINE HYDROCHLORIDE
     Indication: PRODUCT USED FOR UNKNOWN INDICATION
     Dosage: UNKNOWN
     Route: 065
  16. LACIDOFIL [Suspect]
     Active Substance: PROBIOTICS NOS
     Indication: COVID-19
     Dosage: UNKNOWN
     Route: 065
  17. LACIDOFIL [Suspect]
     Active Substance: PROBIOTICS NOS
     Indication: COVID-19
     Dosage: UNKNOWN
     Route: 048
     Dates: start: 20210421, end: 20210514
  18. POTASSIUM CHLORIDE. [Concomitant]
     Active Substance: POTASSIUM CHLORIDE
  19. MAGNESIUM CARBONATE [Concomitant]
     Active Substance: MAGNESIUM CARBONATE
  20. PULMICORT TURBUHALER [Suspect]
     Active Substance: BUDESONIDE
     Indication: COVID-19
     Dosage: UNKNOWN
     Route: 055
     Dates: start: 20210421, end: 20210514
  21. TOCILIZUMAB. [Suspect]
     Active Substance: TOCILIZUMAB
     Indication: COVID-19
     Dosage: UNKNOWN
     Route: 065
  22. METHOTREXATE. [Concomitant]
     Active Substance: METHOTREXATE
     Route: 065
     Dates: start: 2011, end: 20210506
  23. CLEXANE [Suspect]
     Active Substance: ENOXAPARIN SODIUM
     Indication: COVID-19
     Dosage: UNKNOWN0.4MG UNKNOWN
     Route: 058
     Dates: start: 20210421, end: 20210514
  24. BIOTRAKSON [Suspect]
     Active Substance: CEFTRIAXONE SODIUM
     Indication: COVID-19
     Dosage: UNKNOWN
     Route: 065
  25. FEBROFEN [Concomitant]
     Active Substance: KETOPROFEN
     Route: 065
     Dates: start: 2010
  26. ACIDUM FOLICUM [Concomitant]
     Active Substance: FOLIC ACID
     Route: 065
     Dates: start: 2011
  27. MAGNE B6 FORTE [Concomitant]
     Active Substance: MAGNESIUM CITRATE\PYRIDOXINE
     Route: 065
     Dates: start: 2016
  28. VITAMIN D3 K2 [Concomitant]
     Route: 065
     Dates: start: 201703
  29. PULMICORT TURBUHALER [Suspect]
     Active Substance: BUDESONIDE
     Indication: COVID-19
     Dosage: UNKNOWN
     Route: 055
  30. TOCILIZUMAB. [Suspect]
     Active Substance: TOCILIZUMAB
     Indication: COVID-19
     Dosage: UNKNOWN
     Route: 065
     Dates: start: 20210421, end: 20210514
  31. FILGOTINIB [Suspect]
     Active Substance: FILGOTINIB
     Indication: RHEUMATOID ARTHRITIS
     Dosage: FILGOTINIB 200 MG VS PLACEBO, FILGOTINIB 100 MG VS PLACEBO
     Route: 048
     Dates: start: 20180619, end: 20201227
  32. FLEGAMINA [Suspect]
     Active Substance: BROMHEXINE HYDROCHLORIDE
     Indication: COVID-19
     Dosage: UNKNOWN
     Route: 048
     Dates: start: 20210421, end: 20210514
  33. OXYGEN. [Suspect]
     Active Substance: OXYGEN
     Indication: COVID-19
     Dosage: UNKNOWN
     Route: 065
  34. NOLPAZA [Concomitant]
     Active Substance: PANTOPRAZOLE SODIUM
     Route: 065
     Dates: start: 2011
  35. SLOW MAG [Concomitant]
     Active Substance: MAGNESIUM CHLORIDE
     Route: 065
     Dates: start: 2015
  36. CALCIUM GLUCONATE. [Concomitant]
     Active Substance: CALCIUM GLUCONATE
  37. VITAMIN K2 [Concomitant]
     Active Substance: MENAQUINONE 6
  38. MAGNESIUM [Concomitant]
     Active Substance: MAGNESIUM
     Route: 065
     Dates: start: 2015
  39. CLEXANE [Suspect]
     Active Substance: ENOXAPARIN SODIUM
     Indication: COVID-19
     Dosage: UNKNOWN
     Route: 065
  40. BIOTRAKSON [Suspect]
     Active Substance: CEFTRIAXONE SODIUM
     Indication: COVID-19
     Dosage: UNKNOWN
     Route: 065
     Dates: start: 20210421, end: 20210514
  41. FLEGAMINA [Suspect]
     Active Substance: BROMHEXINE HYDROCHLORIDE
     Indication: PRODUCT USED FOR UNKNOWN INDICATION
     Dosage: UNKNOWN
     Route: 048
     Dates: start: 20210421, end: 20210514
  42. TOCILIZUMAB. [Suspect]
     Active Substance: TOCILIZUMAB
     Indication: COVID-19
     Dosage: UNKNOWN
     Route: 065
     Dates: start: 20210421, end: 20210514
  43. ATROX [Concomitant]
     Active Substance: ATORVASTATIN CALCIUM
     Route: 065
     Dates: start: 2015
  44. VITAMIN C [Concomitant]
     Active Substance: ASCORBIC ACID
     Route: 065
     Dates: start: 2005
  45. TOCILIZUMAB. [Suspect]
     Active Substance: TOCILIZUMAB
     Indication: COVID-19
     Dosage: UNKNOWN
     Route: 065
  46. FILGOTINIB [Suspect]
     Active Substance: FILGOTINIB
     Indication: RHEUMATOID ARTHRITIS
     Route: 048
     Dates: start: 20180619, end: 20210421
  47. FILGOTINIB [Suspect]
     Active Substance: FILGOTINIB
     Indication: RHEUMATOID ARTHRITIS
     Dosage: OPEN?LABEL FILGOTINIB
     Route: 048
     Dates: start: 20201228, end: 20210421
  48. MULTI?ELECTROLYTE FLUID [Suspect]
     Active Substance: ELECTROLYTES NOS
     Dosage: UNKNOWN
     Route: 065
  49. NACL [Suspect]
     Active Substance: SODIUM CHLORIDE
     Indication: PRODUCT USED FOR UNKNOWN INDICATION
     Dosage: UNKNOWN
     Route: 065
  50. NACL [Suspect]
     Active Substance: SODIUM CHLORIDE
     Indication: PRODUCT USED FOR UNKNOWN INDICATION
     Dosage: UNKNOWN
     Route: 065
  51. OXYGEN. [Suspect]
     Active Substance: OXYGEN
     Indication: PRODUCT USED FOR UNKNOWN INDICATION
     Dosage: UNKNOWN
     Route: 055
     Dates: start: 20210421, end: 20210514
  52. MENAQUINONE?7 [Concomitant]

REACTIONS (6)
  - Acute respiratory failure [Recovered/Resolved]
  - Chronic respiratory failure [Not Recovered/Not Resolved]
  - Interstitial lung disease [Recovered/Resolved]
  - Pulmonary embolism [Not Recovered/Not Resolved]
  - COVID-19 [Recovered/Resolved]
  - Off label use [Unknown]

NARRATIVE: CASE EVENT DATE: 20210411
